FAERS Safety Report 10306584 (Version 1)
Quarter: 2014Q3

REPORT INFORMATION
  Report Type: Spontaneous
  Country: NL (occurrence: None)
  Receive Date: 20140711
  Receipt Date: 20140711
  Transmission Date: 20150326
  Serious: Yes (Other)
  Sender: FDA-Public Use
  Company Number: 2014-NL-008162

PATIENT

DRUGS (3)
  1. ERWINASE [Suspect]
     Active Substance: ASPARAGINASE ERWINIA CHRYSANTHEMI
     Indication: ACUTE LYMPHOCYTIC LEUKAEMIA
     Dosage: 20000 IU/M2 PER DOSE 2-3 TIMES PER WEEK INTRAVENOUS
     Route: 042
  2. PEG-ASPARGINASE [Concomitant]
     Active Substance: PEGASPARGASE
  3. L ASPARGINASE [Concomitant]
     Active Substance: ASPARAGINASE

REACTIONS (1)
  - Neurotoxicity [None]
